FAERS Safety Report 8517176 (Version 2)
Quarter: 2012Q4

REPORT INFORMATION
  Report Type: 
  Country: US (occurrence: US)
  Receive Date: 20120417
  Receipt Date: 20121120
  Transmission Date: 20130627
  Serious: No
  Sender: FDA-Public Use
  Company Number: US-ASTRAZENECA-2011SE75926

PATIENT
  Age: 52 Year
  Sex: Female
  Weight: 64 kg

DRUGS (2)
  1. NEXIUM [Suspect]
     Route: 048
  2. NEXIUM [Suspect]
     Dosage: EVERY OTHER DAY
     Route: 048

REACTIONS (10)
  - Influenza [Unknown]
  - Migraine [Unknown]
  - Sinusitis [Unknown]
  - Gastric disorder [Unknown]
  - Aphagia [Unknown]
  - Nasopharyngitis [Unknown]
  - Dyspepsia [Unknown]
  - Drug prescribing error [Unknown]
  - Intentional drug misuse [Unknown]
  - Drug dose omission [Unknown]
